FAERS Safety Report 19954213 (Version 1)
Quarter: 2021Q4

REPORT INFORMATION
  Report Type: Spontaneous
  Country: GB (occurrence: GB)
  Receive Date: 20211013
  Receipt Date: 20211013
  Transmission Date: 20220303
  Serious: Yes (Other)
  Sender: FDA-Public Use
  Company Number: GB-PFIZER INC-202101292544

PATIENT
  Age: 27 Year
  Sex: Female

DRUGS (4)
  1. LANSOPRAZOLE [Suspect]
     Active Substance: LANSOPRAZOLE
     Indication: Prophylaxis
     Dosage: 30 MILLIGRAM, SINGLE
     Route: 065
  2. DOMPERIDONE [Suspect]
     Active Substance: DOMPERIDONE
     Indication: Prophylaxis
     Dosage: 30 MILLIGRAM, SINGLE
     Route: 065
  3. PHENYRAMIDOL [Concomitant]
     Active Substance: PHENYRAMIDOL
     Indication: Muscle relaxant therapy
     Dosage: UNK
  4. PHENYRAMIDOL [Concomitant]
     Active Substance: PHENYRAMIDOL
     Indication: Analgesic therapy

REACTIONS (2)
  - Kounis syndrome [Recovered/Resolved]
  - Electrocardiogram QT prolonged [Recovered/Resolved]
